FAERS Safety Report 9844825 (Version 1)
Quarter: 2014Q1

REPORT INFORMATION
  Report Type: Spontaneous
  Country: JP (occurrence: None)
  Receive Date: 20140122
  Receipt Date: 20140122
  Transmission Date: 20141002
  Serious: Yes (Other)
  Sender: FDA-Public Use
  Company Number: 1985953

PATIENT
  Age: 63 Year
  Sex: Male
  Weight: 73.2 kg

DRUGS (3)
  1. DEXMEDETOMIDINE HYDROCHLORIDE [Suspect]
     Indication: SEDATION
     Route: 042
     Dates: start: 20131001, end: 20131001
  2. FENTANYL [Suspect]
  3. ANESTHETICS (LOCAL) [Concomitant]

REACTIONS (4)
  - Bradycardia [None]
  - Hypotension [None]
  - Sedation [None]
  - Respiratory rate decreased [None]
